FAERS Safety Report 15362036 (Version 4)
Quarter: 2018Q4

REPORT INFORMATION
  Report Type: Report from Study
  Country: JP (occurrence: JP)
  Receive Date: 20180907
  Receipt Date: 20181217
  Transmission Date: 20190204
  Serious: Yes (Hospitalization, Other)
  Sender: FDA-Public Use
  Company Number: JP-GLAXOSMITHKLINE-JP2018JPN159115

PATIENT
  Age: 44 Year
  Sex: Female

DRUGS (22)
  1. FUROSEMIDE. [Concomitant]
     Active Substance: FUROSEMIDE
     Dosage: 40 MG, BID
  2. BELIMUMAB SUBCUTANEOUS [Suspect]
     Active Substance: BELIMUMAB
     Indication: SYSTEMIC LUPUS ERYTHEMATOSUS
     Dosage: 200 MG, UNK
     Route: 058
     Dates: start: 20180519, end: 20180721
  3. ACTONEL [Concomitant]
     Active Substance: RISEDRONATE SODIUM
     Dosage: 17.5 MG, WE(MONDAY)
  4. VOLTAREN [Concomitant]
     Active Substance: DICLOFENAC SODIUM
     Dosage: 25 MG, PRN
  5. PREDNISOLONE. [Concomitant]
     Active Substance: PREDNISOLONE
     Dosage: 25 MG, QD
  6. HAPSTAR-ID [Concomitant]
     Dosage: 70 MG, 1D
  7. REBAMIPIDE [Concomitant]
     Active Substance: REBAMIPIDE
     Dosage: 100 MG, UNK
  8. NEXIUM [Concomitant]
     Active Substance: ESOMEPRAZOLE MAGNESIUM
     Dosage: 20 MG, QD
  9. PREDNISOLONE. [Concomitant]
     Active Substance: PREDNISOLONE
     Dosage: 25 MG, QD
  10. PREDNISOLONE. [Concomitant]
     Active Substance: PREDNISOLONE
     Dosage: 15 MG, 1D
  11. OPSUMIT [Concomitant]
     Active Substance: MACITENTAN
     Dosage: 10 MG, QD
  12. SILECE [Concomitant]
     Active Substance: FLUNITRAZEPAM
     Dosage: 1 MG, QD
  13. SLOW-K [Concomitant]
     Active Substance: POTASSIUM CHLORIDE
     Dosage: 600 MG, QD
  14. SEROQUEL [Concomitant]
     Active Substance: QUETIAPINE FUMARATE
     Dosage: 25 MG, QD
  15. DAIPHEN COMBINATION TABLETS [Concomitant]
     Dosage: UNK, (TUESDAY,THURSDAY,SATURDAY)
  16. PREDNISOLONE. [Concomitant]
     Active Substance: PREDNISOLONE
     Dosage: 60 MG, UNK
  17. LENDORMIN [Concomitant]
     Active Substance: BROTIZOLAM
     Dosage: 0.25 MG, QD
  18. ALDACTONE A [Concomitant]
     Active Substance: SPIRONOLACTONE
     Dosage: 25 MG, BID
  19. LIPITOR [Concomitant]
     Active Substance: ATORVASTATIN CALCIUM
     Dosage: 5 MG, QD
  20. FEBURIC [Concomitant]
     Active Substance: FEBUXOSTAT
     Dosage: 10 MG, QD
  21. MAGMITT [Concomitant]
     Active Substance: MAGNESIUM OXIDE
     Dosage: 660 MG, TID
  22. ADCIRCA [Concomitant]
     Active Substance: TADALAFIL
     Dosage: 20 MG, BID

REACTIONS (6)
  - Red cell fragmentation syndrome [Recovering/Resolving]
  - Erythema [Recovering/Resolving]
  - Anaemia [Recovering/Resolving]
  - Hyperthermia [Recovering/Resolving]
  - Complement factor decreased [Recovering/Resolving]
  - Systemic lupus erythematosus [Recovering/Resolving]

NARRATIVE: CASE EVENT DATE: 2018
